APPROVED DRUG PRODUCT: KLISYRI
Active Ingredient: TIRBANIBULIN
Strength: 1%
Dosage Form/Route: OINTMENT;TOPICAL
Application: N213189 | Product #001
Applicant: ALMIRALL LLC
Approved: Dec 14, 2020 | RLD: Yes | RS: Yes | Type: RX

PATENTS:
Patent 7851470 | Expires: Feb 2, 2029
Patent 10617693 | Expires: Mar 12, 2038
Patent 11497750 | Expires: Mar 12, 2038
Patent 7300931 | Expires: Dec 28, 2030
Patent 10669236 | Expires: Sep 7, 2038
Patent 10323001 | Expires: Dec 28, 2027

EXCLUSIVITY:
Code: D-192 | Date: Jun 7, 2027